FAERS Safety Report 11936634 (Version 3)
Quarter: 2016Q2

REPORT INFORMATION
  Report Type: Other
  Country: IT (occurrence: IT)
  Receive Date: 20160121
  Receipt Date: 20160422
  Transmission Date: 20160815
  Serious: Yes (Death, Other)
  Sender: FDA-Public Use
  Company Number: IT-ASTELLAS-2016US002122

PATIENT
  Age: 71 Year
  Sex: Female

DRUGS (1)
  1. MYCAMINE [Suspect]
     Active Substance: MICAFUNGIN SODIUM
     Indication: SEPSIS
     Dosage: 100 MG, TOTAL
     Route: 042
     Dates: start: 20160108, end: 20160108

REACTIONS (2)
  - Haemolytic anaemia [Fatal]
  - Postoperative respiratory failure [Fatal]

NARRATIVE: CASE EVENT DATE: 20160108
